FAERS Safety Report 8045540-1 (Version None)
Quarter: 2012Q1

REPORT INFORMATION
  Report Type: 
  Country: None (occurrence: None)
  Receive Date: 20120113
  Receipt Date: 20120111
  Transmission Date: 20120608
  Serious: No
  Sender: FDA-Public Use
  Company Number: US-BAYER-2012-003760

PATIENT
  Sex: Male
  Weight: 70.295 kg

DRUGS (2)
  1. ACETAMINOPHEN [Concomitant]
     Dosage: 500 MG, UNK
  2. BETASERON [Suspect]
     Dosage: 1 ML, QOD
     Route: 058

REACTIONS (4)
  - INSOMNIA [None]
  - COORDINATION ABNORMAL [None]
  - HEADACHE [None]
  - DEPRESSION [None]
